FAERS Safety Report 5634532-5 (Version None)
Quarter: 2008Q1

REPORT INFORMATION
  Report Type: 
  Country: None (occurrence: None)
  Receive Date: 20080220
  Receipt Date: 20080220
  Transmission Date: 20080703
  Serious: Yes (Life-Threatening, Hospitalization)
  Sender: FDA-Public Use
  Company Number: None

PATIENT
  Age: 23 Year
  Sex: Female
  Weight: 86.1834 kg

DRUGS (2)
  1. TYLENOL W/ CODEINE NO. 3 [Suspect]
     Indication: CAESAREAN SECTION
     Dosage: Q 4 HOURS PO
     Route: 048
  2. TYLENOL W/ CODEINE NO. 3 [Suspect]
     Indication: POSTOPERATIVE CARE
     Dosage: Q 4 HOURS PO
     Route: 048

REACTIONS (4)
  - CYANOSIS [None]
  - DRUG EXPOSURE VIA BREAST MILK [None]
  - NEONATAL DISORDER [None]
  - NEONATAL RESPIRATORY ARREST [None]
